FAERS Safety Report 7521957-6 (Version None)
Quarter: 2011Q2

REPORT INFORMATION
  Report Type: 
  Country: None (occurrence: None)
  Receive Date: 20110524
  Receipt Date: 20110513
  Transmission Date: 20111010
  Serious: Yes (Hospitalization)
  Sender: FDA-Public Use
  Company Number: 2009-02960

PATIENT
  Age: 77 Year
  Sex: Male
  Weight: 96 kg

DRUGS (2)
  1. DEXAMETHASONE TAB [Suspect]
     Indication: MULTIPLE MYELOMA
     Dosage: 20 MG, CYCLIC, ORAL
     Route: 048
     Dates: start: 20090526
  2. VELCADE [Suspect]
     Indication: MULTIPLE MYELOMA
     Dosage: 1.3 MG/M2, INTRAVENOUS
     Route: 042
     Dates: start: 20090526

REACTIONS (3)
  - HALLUCINATION, AUDITORY [None]
  - NIGHTMARE [None]
  - DEPRESSION SUICIDAL [None]
